FAERS Safety Report 20016896 (Version 1)
Quarter: 2021Q4

REPORT INFORMATION
  Report Type: Spontaneous
  Country: US (occurrence: None)
  Receive Date: 20211105
  Receipt Date: 20211105
  Transmission Date: 20220303
  Serious: Yes (Death, Hospitalization)
  Sender: FDA-Public Use
  Company Number: None

PATIENT
  Age: 62 Year
  Sex: Male

DRUGS (1)
  1. YESCARTA [Suspect]
     Active Substance: AXICABTAGENE CILOLEUCEL
     Indication: Diffuse large B-cell lymphoma
     Dosage: OTHER FREQUENCY : ONCE;?
     Dates: start: 20210217, end: 20210217

REACTIONS (4)
  - Neurotoxicity [None]
  - Bacteraemia [None]
  - Lymphadenopathy [None]
  - Cellulitis [None]

NARRATIVE: CASE EVENT DATE: 20210301
